FAERS Safety Report 5048275-2 (Version None)
Quarter: 2006Q2

REPORT INFORMATION
  Report Type: 
  Country: None (occurrence: None)
  Receive Date: 20060601
  Receipt Date: 20060217
  Transmission Date: 20061013
  Serious: No
  Sender: FDA-Public Use
  Company Number: 2006PV008885

PATIENT
  Age: 66 Year
  Sex: Female
  Weight: 123.3784 kg

DRUGS (4)
  1. BYETTA [Suspect]
     Indication: DIABETES MELLITUS NON-INSULIN-DEPENDENT
     Dosage: SEE IMAGE
     Route: 058
     Dates: start: 20051208, end: 20060112
  2. BYETTA [Suspect]
     Indication: DIABETES MELLITUS NON-INSULIN-DEPENDENT
     Dosage: SEE IMAGE
     Route: 058
     Dates: start: 20060113, end: 20060215
  3. ACTOS [Concomitant]
  4. METFORMIN [Concomitant]

REACTIONS (11)
  - ABDOMINAL PAIN [None]
  - DECREASED APPETITE [None]
  - DIARRHOEA [None]
  - DRUG INEFFECTIVE FOR UNAPPROVED INDICATION [None]
  - ERUCTATION [None]
  - FAECAL VOLUME DECREASED [None]
  - FEELING COLD [None]
  - FLATULENCE [None]
  - INJECTION SITE BRUISING [None]
  - STOMACH DISCOMFORT [None]
  - WEIGHT DECREASED [None]
